FAERS Safety Report 24138284 (Version 1)
Quarter: 2024Q3

REPORT INFORMATION
  Report Type: Spontaneous
  Country: US (occurrence: US)
  Receive Date: 20240725
  Receipt Date: 20240725
  Transmission Date: 20241016
  Serious: No
  Sender: TEIKOKU
  Company Number: US-TPU-TPU-2024-00395

PATIENT
  Sex: Female

DRUGS (1)
  1. LIDOCAINE [Suspect]
     Active Substance: LIDOCAINE
     Indication: Neuralgia
     Dates: start: 202407

REACTIONS (1)
  - Wrong technique in product usage process [Unknown]
